FAERS Safety Report 15211568 (Version 1)
Quarter: 2018Q3

REPORT INFORMATION
  Report Type: Spontaneous
  Country: US (occurrence: US)
  Receive Date: 20180702
  Receipt Date: 20180702
  Transmission Date: 20181010
  Serious: Yes (Hospitalization)
  Sender: FDA-Public Use
  Company Number: None

PATIENT
  Age: 64 Year
  Sex: Male

DRUGS (15)
  1. ASPIRIN. [Concomitant]
     Active Substance: ASPIRIN
     Dates: start: 20160126
  2. BRILINTA [Concomitant]
     Active Substance: TICAGRELOR
     Dates: start: 20180409
  3. SIMVASTATIN. [Concomitant]
     Active Substance: SIMVASTATIN
     Dates: start: 20160126
  4. ALBUTEROL POW SULFATE [Concomitant]
     Dates: start: 20180629
  5. NITROGLYCERN SUB [Concomitant]
     Dates: start: 20160629
  6. METOPROLOL. [Concomitant]
     Active Substance: METOPROLOL
     Dates: start: 20160126
  7. FOLIC ACID. [Concomitant]
     Active Substance: FOLIC ACID
     Dates: start: 20160126
  8. LISINOPRIL. [Concomitant]
     Active Substance: LISINOPRIL
     Dates: start: 20160126
  9. TAMSULOSIN [Concomitant]
     Active Substance: TAMSULOSIN
     Dates: start: 20160126
  10. FLUTICASONE. [Concomitant]
     Active Substance: FLUTICASONE
     Dates: start: 20160126
  11. LEVOTHYROXIN [Concomitant]
     Active Substance: LEVOTHYROXINE
     Dates: start: 20160126
  12. METHOTREXATE. [Concomitant]
     Active Substance: METHOTREXATE
     Dates: start: 20160126
  13. NITROGLYCER DIS [Concomitant]
     Dates: start: 20160126
  14. ENBREL [Suspect]
     Active Substance: ETANERCEPT
     Indication: RHEUMATOID ARTHRITIS
     Dosage: ?          OTHER FREQUENCY:ONCE A WEEK;?
     Route: 058
     Dates: start: 20160127
  15. METOPROL TAR [Concomitant]
     Dates: start: 20180629

REACTIONS (1)
  - Contusion [None]
